FAERS Safety Report 6121505-1 (Version None)
Quarter: 2009Q1

REPORT INFORMATION
  Report Type: 
  Country: None (occurrence: None)
  Receive Date: 20090316
  Receipt Date: 20090316
  Transmission Date: 20090719
  Serious: No
  Sender: FDA-Public Use
  Company Number: None

PATIENT
  Age: 28 Year
  Sex: Female
  Weight: 89.8122 kg

DRUGS (1)
  1. ZICAM ZICAM [Suspect]
     Indication: NASOPHARYNGITIS
     Dosage: 2 EVERY THREE HOURS PO  (I JUST TOOK TWO)
     Route: 048
     Dates: start: 20090315, end: 20090315

REACTIONS (2)
  - AGEUSIA [None]
  - GLOSSODYNIA [None]
